FAERS Safety Report 6684098-6 (Version None)
Quarter: 2010Q2

REPORT INFORMATION
  Report Type: 
  Country: None (occurrence: None)
  Receive Date: 20100416
  Receipt Date: 20100406
  Transmission Date: 20101027
  Serious: Yes (Other)
  Sender: FDA-Public Use
  Company Number: PHEH2010US02825

PATIENT
  Sex: Female
  Weight: 80 kg

DRUGS (1)
  1. GLEEVEC [Suspect]
     Indication: GASTROINTESTINAL STROMAL TUMOUR
     Dosage: 400 MG, UNK
     Route: 048
     Dates: start: 20091001, end: 20091101

REACTIONS (3)
  - DRUG ERUPTION [None]
  - RASH MACULO-PAPULAR [None]
  - RASH MORBILLIFORM [None]
